FAERS Safety Report 16167371 (Version 1)
Quarter: 2019Q2

REPORT INFORMATION
  Report Type: Spontaneous
  Country: NL (occurrence: NL)
  Receive Date: 20190408
  Receipt Date: 20190408
  Transmission Date: 20190711
  Serious: Yes (Other)
  Sender: FDA-Public Use
  Company Number: NL-SUN PHARMACEUTICAL INDUSTRIES LTD-2019RR-204335

PATIENT
  Age: 42 Year
  Sex: Female
  Weight: 65 kg

DRUGS (1)
  1. ISOTRETINOIN. [Suspect]
     Active Substance: ISOTRETINOIN
     Indication: ACNE
     Dosage: 10 MG PER DAG
     Route: 050
     Dates: start: 20190204, end: 20190209

REACTIONS (12)
  - Oropharyngeal pain [Recovered/Resolved]
  - Middle insomnia [Recovered/Resolved]
  - Dry eye [Recovered/Resolved]
  - Ear pain [Recovered/Resolved]
  - Confusional state [Recovered/Resolved]
  - Coordination abnormal [Recovered/Resolved]
  - Migraine [Recovered/Resolved]
  - Decreased appetite [Recovered/Resolved]
  - Dizziness [Recovered/Resolved]
  - Fatigue [Recovered/Resolved]
  - Vision blurred [Recovered/Resolved]
  - Depressed mood [Recovered/Resolved]

NARRATIVE: CASE EVENT DATE: 20190208
